FAERS Safety Report 20100303 (Version 1)
Quarter: 2021Q4

REPORT INFORMATION
  Report Type: Spontaneous
  Country: US (occurrence: US)
  Receive Date: 20211123
  Receipt Date: 20211123
  Transmission Date: 20220304
  Serious: Yes (Death, Hospitalization)
  Sender: FDA-Public Use
  Company Number: US-JNJFOC-20211131275

PATIENT
  Age: 47 Year
  Sex: Female

DRUGS (4)
  1. TYLENOL [Suspect]
     Active Substance: ACETAMINOPHEN
     Indication: Back pain
     Route: 048
     Dates: end: 20030822
  2. VICODIN [Suspect]
     Active Substance: ACETAMINOPHEN\HYDROCODONE BITARTRATE
     Indication: Back pain
     Dosage: 50 TABLETS OF VICODIN (ACETAMINOPHEN 325 MG/HYDROCODONE BITARTRATE UNKNOWN MG); TOTAL DOSE OF 16250
     Route: 048
     Dates: end: 20030822
  3. ACETAMINOPHEN\ASPIRIN\CAFFEINE\SALICYLAMIDE [Suspect]
     Active Substance: ACETAMINOPHEN\ASPIRIN\CAFFEINE\SALICYLAMIDE
     Indication: Product used for unknown indication
     Route: 065
     Dates: end: 20030822
  4. DURAGESIC [Concomitant]
     Active Substance: FENTANYL
     Indication: Product used for unknown indication
     Dosage: TOTAL DOSE: 75 MCG
     Route: 065
     Dates: end: 20030822

REACTIONS (5)
  - Acute hepatic failure [Fatal]
  - Acute kidney injury [Fatal]
  - Brain death [Fatal]
  - Product administration error [Fatal]
  - Accidental overdose [Fatal]

NARRATIVE: CASE EVENT DATE: 20030826
